FAERS Safety Report 11129037 (Version 4)
Quarter: 2015Q3

REPORT INFORMATION
  Report Type: Spontaneous
  Country: IT (occurrence: IT)
  Receive Date: 20150521
  Receipt Date: 20150707
  Transmission Date: 20151125
  Serious: Yes (Other)
  Sender: FDA-Public Use
  Company Number: IT-PFIZER INC-2015165099

PATIENT
  Age: 80 Year
  Sex: Female

DRUGS (9)
  1. NITROGLYCERIN. [Suspect]
     Active Substance: NITROGLYCERIN
     Indication: CARDIAC DISORDER
     Dosage: 5 MG, SEP. DOSAGES / INTERVAL: 1 DAYS
     Route: 062
     Dates: start: 2011
  2. TRADJENTA [Suspect]
     Active Substance: LINAGLIPTIN
     Indication: DIABETES MELLITUS
     Dosage: 5 MG, SEP. DOSAGES / INTERVAL: 1
     Route: 048
     Dates: start: 2011
  3. FOLINA [Suspect]
     Active Substance: FOLIC ACID
     Indication: ANAEMIA
     Dosage: 5 MG, SEP. DOSAGES / INTERVAL: 1
     Route: 048
     Dates: start: 2011
  4. MODURETIC 5-50 [Suspect]
     Active Substance: AMILORIDE HYDROCHLORIDE\HYDROCHLOROTHIAZIDE
     Indication: HYPERTENSION
     Dosage: 55 MG, SEP. DOSAGES / INTERVAL: 1
     Route: 048
     Dates: start: 2011
  5. SIMVASTATIN. [Suspect]
     Active Substance: SIMVASTATIN
     Dosage: 20 MG, SEP. DOSAGES / INTERVAL: 1 DAYS
     Route: 048
     Dates: start: 2011
  6. EUTIROX [Suspect]
     Active Substance: LEVOTHYROXINE SODIUM
     Indication: HYPOTHYROIDISM
     Dosage: 50 ?G, SEP. DOSAGES / INTERVAL: 1 DAYS
     Route: 048
     Dates: start: 2011
  7. HYDROCHLOROTHIAZIDE. [Suspect]
     Active Substance: HYDROCHLOROTHIAZIDE
     Dosage: UNK
     Dates: start: 2011
  8. ALLURIT [Suspect]
     Active Substance: ALLOPURINOL
     Indication: HYPERURICAEMIA
     Dosage: 150 MG, SEP. DOSAGES / INTERVAL: 1
     Route: 048
     Dates: start: 2011
  9. LANSOPRAZOLE. [Suspect]
     Active Substance: LANSOPRAZOLE
     Indication: HIATUS HERNIA
     Dosage: 30 MG, SEP. DOSAGES / INTERVAL: 1 DAYS
     Route: 048
     Dates: start: 2011

REACTIONS (2)
  - Chest pain [Recovered/Resolved]
  - Paraesthesia [Recovered/Resolved]

NARRATIVE: CASE EVENT DATE: 20140629
